FAERS Safety Report 19605982 (Version 7)
Quarter: 2021Q3

REPORT INFORMATION
  Report Type: Report from Study
  Country: CN (occurrence: CN)
  Receive Date: 20210723
  Receipt Date: 20210922
  Transmission Date: 20211014
  Serious: Yes (Death, Hospitalization)
  Sender: FDA-Public Use
  Company Number: CN-ROCHE-2827377

PATIENT
  Age: 55 Year
  Sex: Male
  Weight: 77 kg

DRUGS (18)
  1. CODEINE PHOSPHATE [Concomitant]
     Active Substance: CODEINE PHOSPHATE
     Indication: COUGH
     Dates: start: 20210512, end: 20210512
  2. CARBOPLATIN. [Suspect]
     Active Substance: CARBOPLATIN
     Indication: NON-SMALL CELL LUNG CANCER
     Dosage: START DATE OF MOST RECENT DOSE (823 MG) OF STUDY DRUG PRIOR TO SAE 01/DEC/2020
     Route: 042
     Dates: start: 20200928
  3. SODIUM IBANDRONATE [Concomitant]
     Active Substance: IBANDRONATE SODIUM
     Dates: start: 20210512, end: 20210512
  4. HEPARIN SODIUM. [Concomitant]
     Active Substance: HEPARIN SODIUM
     Dates: start: 20210511, end: 20210512
  5. BEVACIZUMAB. [Suspect]
     Active Substance: BEVACIZUMAB
     Indication: NON-SMALL CELL LUNG CANCER
     Dosage: START DATE OF MOST RECENT DOSE (1125 MG) OF STUDY DRUG PRIOR TO SAE 16/APR/2021?START DATE OF MOST R
     Route: 042
     Dates: start: 20200928
  6. AMLODIPINE BESYLATE. [Concomitant]
     Active Substance: AMLODIPINE BESYLATE
     Indication: HYPERTENSION
     Dates: start: 20210115
  7. DEXAMETHASONE ACETATE [Concomitant]
     Active Substance: DEXAMETHASONE ACETATE
     Route: 048
     Dates: start: 20210324, end: 20210326
  8. INSULIN [Concomitant]
     Active Substance: INSULIN NOS
     Indication: DIABETES MELLITUS
     Dates: start: 20210507, end: 20210507
  9. INSULIN ASPART [Concomitant]
     Active Substance: INSULIN ASPART
     Indication: DIABETES MELLITUS
     Dates: start: 20210508, end: 20210512
  10. TROPISETRON HYDROCHLORIDE [Concomitant]
     Active Substance: TROPISETRON HYDROCHLORIDE
     Dates: start: 20210325, end: 20210325
  11. PEMETREXED. [Suspect]
     Active Substance: PEMETREXED
     Indication: NON-SMALL CELL LUNG CANCER
     Dosage: START DATE OF MOST RECENT DOSE (960 MG) OF STUDY DRUG PRIOR TO SAE16/APR/2021?START DATE OF MOST REC
     Route: 042
     Dates: start: 20200928
  12. CORBRIN [Concomitant]
     Active Substance: DIETARY SUPPLEMENT\OPHIOCORDYCEPS SINENSIS
     Indication: PROTEINURIA
     Dates: start: 20210326
  13. VITAMIN B12 [Concomitant]
     Active Substance: CYANOCOBALAMIN
     Dates: start: 20210416, end: 20210416
  14. VALSARTAN. [Concomitant]
     Active Substance: VALSARTAN
     Indication: PROTEINURIA
     Dates: start: 20210326
  15. ATEZOLIZUMAB. [Suspect]
     Active Substance: ATEZOLIZUMAB
     Indication: NON-SMALL CELL LUNG CANCER
     Dosage: START DATE OF MOST RECENT DOSE (1200 MG) OF BLINDED ATEZOLIZUMAB:  25/MAR/2021
     Route: 041
     Dates: start: 20200928
  16. TROPISETRON HYDROCHLORIDE [Concomitant]
     Active Substance: TROPISETRON HYDROCHLORIDE
     Indication: PROPHYLAXIS OF NAUSEA AND VOMITING
     Dates: start: 20210416, end: 20210416
  17. SODIUM IBANDRONATE [Concomitant]
     Active Substance: IBANDRONATE SODIUM
     Indication: CANCER PAIN
     Dates: start: 20210416, end: 20210416
  18. CODEINE PHOSPHATE [Concomitant]
     Active Substance: CODEINE PHOSPHATE
     Dates: start: 20210326

REACTIONS (1)
  - Pneumonia [Fatal]

NARRATIVE: CASE EVENT DATE: 20210414
